FAERS Safety Report 6179092-8 (Version None)
Quarter: 2009Q2

REPORT INFORMATION
  Report Type: 
  Country: None (occurrence: None)
  Receive Date: 20090430
  Receipt Date: 20090416
  Transmission Date: 20091009
  Serious: Yes (Other)
  Sender: FDA-Public Use
  Company Number: CHPA2009US09254

PATIENT
  Age: 9 Year
  Sex: Female
  Weight: 29 kg

DRUGS (1)
  1. TRIAMINIC DAY TIME COLD + COUGH (NCH) (DEXTROMETHORPHAN HYDROBROMIDE, [Suspect]
     Indication: NASOPHARYNGITIS
     Dosage: 2 TSP, TID, ORAL
     Route: 048
     Dates: start: 20090404, end: 20090405

REACTIONS (7)
  - BLEPHAROSPASM [None]
  - COLD SWEAT [None]
  - FALL [None]
  - GAZE PALSY [None]
  - LOSS OF CONSCIOUSNESS [None]
  - SOMNOLENCE [None]
  - SYNCOPE [None]
